FAERS Safety Report 6531713-3 (Version None)
Quarter: 2010Q1

REPORT INFORMATION
  Report Type: 
  Country: None (occurrence: None)
  Receive Date: 20100108
  Receipt Date: 20100104
  Transmission Date: 20100710
  Serious: Yes (Other)
  Sender: FDA-Public Use
  Company Number: GB-BRISTOL-MYERS SQUIBB COMPANY-14922280

PATIENT
  Age: 33 Year
  Sex: Female

DRUGS (3)
  1. EFAVIRENZ [Suspect]
     Indication: HIV INFECTION
  2. IMPLANON [Suspect]
     Indication: CONTRACEPTION
     Dosage: 11AUG04-16JUL07, 16JUL07-24JUN08.
     Route: 058
     Dates: start: 20040811, end: 20080624
  3. TRUVADA [Suspect]
     Indication: HIV INFECTION

REACTIONS (2)
  - NORMAL NEWBORN [None]
  - PREGNANCY WITH IMPLANT CONTRACEPTIVE [None]
